FAERS Safety Report 9403688 (Version 1)
Quarter: 2013Q3

REPORT INFORMATION
  Report Type: Spontaneous
  Country: US (occurrence: None)
  Receive Date: 20130715
  Receipt Date: 20130715
  Transmission Date: 20140515
  Serious: Yes (Hospitalization)
  Sender: FDA-Public Use
  Company Number: None

PATIENT
  Age: 64 Year
  Sex: Male

DRUGS (1)
  1. CLINDAMYCIN [Suspect]
     Dosage: ~04/27/2013
     Dates: start: 20130427

REACTIONS (1)
  - Rash [None]
